FAERS Safety Report 16460364 (Version 7)
Quarter: 2019Q4

REPORT INFORMATION
  Report Type: Spontaneous
  Country: MX (occurrence: MX)
  Receive Date: 20190620
  Receipt Date: 20191004
  Transmission Date: 20200122
  Serious: Yes (Hospitalization, Other)
  Sender: FDA-Public Use
  Company Number: MX-ASTRAZENECA-2019SE88415

PATIENT
  Age: 71 Year
  Sex: Female
  Weight: 65 kg

DRUGS (10)
  1. XIGDUO XR [Suspect]
     Active Substance: DAPAGLIFLOZIN PROPANEDIOL\METFORMIN HYDROCHLORIDE
     Indication: DIABETES MELLITUS
     Dosage: 10/1000 MG, 1 TABLET EVERY 24 HOURS, IN THE MORNING, DAILY
     Route: 048
     Dates: start: 20190612
  2. ULSEN [Concomitant]
     Active Substance: OMEPRAZOLE
     Indication: GASTRITIS
     Route: 048
     Dates: start: 20190610, end: 20190715
  3. MINITRAN [Concomitant]
     Active Substance: NITROGLYCERIN
     Indication: CARDIAC DISORDER
     Route: 003
     Dates: start: 20190610, end: 20190715
  4. XIGDUO XR [Interacting]
     Active Substance: DAPAGLIFLOZIN PROPANEDIOL\METFORMIN HYDROCHLORIDE
     Indication: TYPE 2 DIABETES MELLITUS
     Dosage: 10/1000 MG, 1 TABLET EVERY 24 HOURS, IN THE MORNING, DAILY
     Route: 048
     Dates: start: 20190612
  5. SELOKEN ZOK [Interacting]
     Active Substance: METOPROLOL SUCCINATE
     Indication: HYPERTENSION
     Route: 048
     Dates: start: 201806
  6. LASIX [Interacting]
     Active Substance: FUROSEMIDE
     Indication: FLUID RETENTION
     Route: 048
     Dates: start: 20190610
  7. SPIRONOLACTONE. [Concomitant]
     Active Substance: SPIRONOLACTONE
     Dosage: 26 MG 1 TABLET EVERY 24 HOURS
     Dates: start: 20190912
  8. MICARDIS [Concomitant]
     Active Substance: TELMISARTAN
     Indication: HYPERTENSION
     Dosage: 80/5 MG 1 TABLET EVERY 24 HOURS, 80 MG DAILY
     Route: 048
     Dates: start: 2018
  9. PHARMATON [Concomitant]
     Active Substance: MINERALS\VITAMINS
     Route: 048
     Dates: start: 20181221
  10. CALTRATE [Concomitant]
     Active Substance: CALCIUM CARBONATE
     Dosage: DAILY
     Route: 048
     Dates: start: 20181221

REACTIONS (15)
  - Productive cough [Not Recovered/Not Resolved]
  - Dysphagia [Recovered/Resolved]
  - Cardiac disorder [Not Recovered/Not Resolved]
  - Diarrhoea [Not Recovered/Not Resolved]
  - Chest discomfort [Recovered/Resolved]
  - Constipation [Recovered/Resolved]
  - Decreased appetite [Recovered/Resolved]
  - Pulmonary congestion [Not Recovered/Not Resolved]
  - Headache [Recovered/Resolved]
  - Drug interaction [Not Recovered/Not Resolved]
  - Blindness unilateral [Not Recovered/Not Resolved]
  - Gastritis [Not Recovered/Not Resolved]
  - Pollakiuria [Recovering/Resolving]
  - Hypertension [Not Recovered/Not Resolved]
  - Blood glucose increased [Recovered/Resolved]

NARRATIVE: CASE EVENT DATE: 2019
